FAERS Safety Report 4696713-7 (Version None)
Quarter: 2005Q2

REPORT INFORMATION
  Report Type: 
  Country: None (occurrence: None)
  Receive Date: 20050620
  Receipt Date: 20050610
  Transmission Date: 20051028
  Serious: Yes (Hospitalization)
  Sender: FDA-Public Use
  Company Number: 2005US-00548

PATIENT
  Age: 48 Year
  Sex: Male

DRUGS (5)
  1. NORTRIPTYLINE HYDROCHLORIDE(NORTRIPTYLINE HYDROCHLORIDE) UNKNOWN [Suspect]
  2. PAROXETINE HCL [Concomitant]
  3. DIAZEPAM [Concomitant]
  4. ZOPICLONE [Concomitant]
  5. TRICYCLIC ANTIDEPRESSANTS [Concomitant]

REACTIONS (3)
  - BRUGADA SYNDROME [None]
  - MULTIPLE DRUG OVERDOSE [None]
  - OXYGEN SATURATION DECREASED [None]
